FAERS Safety Report 15013210 (Version 1)
Quarter: 2018Q2

REPORT INFORMATION
  Report Type: Report from Study
  Country: CA (occurrence: CA)
  Receive Date: 20180614
  Receipt Date: 20180614
  Transmission Date: 20180711
  Serious: Yes (Death, Hospitalization, Other)
  Sender: FDA-Public Use
  Company Number: PHHY2015CA034649

PATIENT
  Age: 59 Year
  Sex: Male

DRUGS (3)
  1. SANDOSTATIN LAR DEPOT [Suspect]
     Active Substance: OCTREOTIDE ACETATE
     Dosage: 30 MG, QMO (ONCE A MONTH)
     Route: 030
     Dates: start: 20140117
  2. SANDOSTATIN LAR DEPOT [Suspect]
     Active Substance: OCTREOTIDE ACETATE
     Indication: NEUROENDOCRINE TUMOUR
     Dosage: 30 MG, QMO (EVERY 4 WEEKS)
     Route: 030
     Dates: start: 20130614
  3. AFINITOR [Suspect]
     Active Substance: EVEROLIMUS
     Indication: NEUROENDOCRINE TUMOUR
     Dosage: 10 MG, QD
     Route: 048
     Dates: start: 201306

REACTIONS (28)
  - Haematocrit decreased [Unknown]
  - Prostatic specific antigen decreased [Unknown]
  - Lymphocyte count decreased [Unknown]
  - Haemoglobin decreased [Unknown]
  - Jaundice [Unknown]
  - Blood pressure increased [Recovering/Resolving]
  - Blood chromogranin A increased [Unknown]
  - Blood pressure systolic increased [Unknown]
  - Fatigue [Unknown]
  - Gamma-glutamyltransferase increased [Unknown]
  - Back pain [Not Recovered/Not Resolved]
  - Monocyte count increased [Unknown]
  - Abdominal pain [Recovered/Resolved]
  - Malignant neoplasm progression [Unknown]
  - Blood lactate dehydrogenase increased [Unknown]
  - Proctalgia [Unknown]
  - Mean cell volume increased [Unknown]
  - Aspartate aminotransferase increased [Unknown]
  - Neutrophil count decreased [Unknown]
  - Pyrexia [Recovering/Resolving]
  - Asthenia [Unknown]
  - Blood pressure diastolic increased [Unknown]
  - White blood cell count decreased [Unknown]
  - Weight decreased [Unknown]
  - Cholelithiasis [Unknown]
  - Death [Fatal]
  - Metastases to liver [Unknown]
  - Mass [Unknown]

NARRATIVE: CASE EVENT DATE: 20150318
